FAERS Safety Report 6362412-9 (Version None)
Quarter: 2009Q3

REPORT INFORMATION
  Report Type: 
  Country: None (occurrence: None)
  Receive Date: 20090918
  Receipt Date: 20090617
  Transmission Date: 20100115
  Serious: No
  Sender: FDA-Public Use
  Company Number: US-ABBOTT-09P-163-0571900-00

PATIENT
  Sex: Male

DRUGS (1)
  1. HUMIRA [Suspect]
     Indication: CROHN'S DISEASE
     Dates: start: 20081112

REACTIONS (10)
  - COUGH [None]
  - DYSPHONIA [None]
  - HERPES ZOSTER [None]
  - INCREASED UPPER AIRWAY SECRETION [None]
  - NODULE [None]
  - OROPHARYNGEAL DISCOMFORT [None]
  - PARANASAL SINUS HYPERSECRETION [None]
  - RASH MACULAR [None]
  - SINUSITIS [None]
  - UVEITIS [None]
